FAERS Safety Report 9019811 (Version 2)
Quarter: 2013Q1

REPORT INFORMATION
  Report Type: Spontaneous
  Country: US (occurrence: US)
  Receive Date: 20130118
  Receipt Date: 20130123
  Transmission Date: 20140127
  Serious: Yes (Death)
  Sender: FDA-Public Use
  Company Number: US-ROCHE-1181088

PATIENT
  Sex: Female
  Weight: 61.29 kg

DRUGS (5)
  1. AVASTIN [Suspect]
     Indication: OVARIAN CANCER
     Route: 065
     Dates: start: 20121002, end: 20121128
  2. DOXIL (UNITED STATES) [Suspect]
     Indication: OVARIAN CANCER
     Route: 065
     Dates: start: 20121002, end: 20121128
  3. ETOPOSIDE [Suspect]
     Indication: OVARIAN CANCER
     Route: 065
     Dates: start: 201202, end: 201207
  4. CARBOPLATIN [Suspect]
     Indication: OVARIAN CANCER
     Route: 065
     Dates: start: 201110
  5. TAXOL [Suspect]
     Indication: OVARIAN CANCER
     Route: 065
     Dates: start: 201110

REACTIONS (1)
  - Disease progression [Fatal]
